FAERS Safety Report 7130551-0 (Version None)
Quarter: 2010Q4

REPORT INFORMATION
  Report Type: 
  Country: None (occurrence: None)
  Receive Date: 20101201
  Receipt Date: 20101122
  Transmission Date: 20110411
  Serious: Yes (Hospitalization)
  Sender: FDA-Public Use
  Company Number: JP-ASTRAZENECA-2010SE56297

PATIENT
  Age: 52 Year
  Sex: Female

DRUGS (1)
  1. PARAPRES 4 MG COMPRIMIDOS [Suspect]
     Indication: HYPERTENSION
     Route: 048
     Dates: start: 20040101, end: 20060303

REACTIONS (1)
  - AUTOIMMUNE THROMBOCYTOPENIA [None]
